FAERS Safety Report 7128488-6 (Version None)
Quarter: 2010Q4

REPORT INFORMATION
  Report Type: 
  Country: None (occurrence: None)
  Receive Date: 20101130
  Receipt Date: 20101117
  Transmission Date: 20110411
  Serious: Yes (Other)
  Sender: FDA-Public Use
  Company Number: NO-ACTELION-A-CH2010-41735

PATIENT
  Age: 37 Year
  Sex: Female
  Weight: 62 kg

DRUGS (5)
  1. BOSENTAN TABLET 125 MG DUO ROW [Suspect]
     Indication: SKIN ULCER
     Dosage: 125 MG, BID
     Route: 048
     Dates: start: 20100101, end: 20100711
  2. BOSENTAN TABLET 125 MG DUO ROW [Suspect]
     Dosage: 93.75 MG, BID
     Route: 048
     Dates: start: 20100712
  3. ALBYL-E [Concomitant]
     Indication: CEREBELLAR INFARCTION
     Dosage: UNK
     Dates: start: 20100501
  4. LEVOTHYROXINE SODIUM [Concomitant]
     Indication: HYPOTHYROIDISM
     Dosage: UNK
     Dates: start: 20050101
  5. PERSANTIN [Concomitant]
     Indication: CEREBELLAR INFARCTION
     Dosage: UNK
     Dates: start: 20100505

REACTIONS (4)
  - ALANINE AMINOTRANSFERASE INCREASED [None]
  - CEREBELLAR INFARCTION [None]
  - HEADACHE [None]
  - LIVER FUNCTION TEST ABNORMAL [None]
